FAERS Safety Report 9546540 (Version 1)
Quarter: 2013Q3

REPORT INFORMATION
  Report Type: Spontaneous
  Country: US (occurrence: US)
  Receive Date: 20130923
  Receipt Date: 20130923
  Transmission Date: 20140515
  Serious: Yes (Other)
  Sender: FDA-Public Use
  Company Number: US-TAKEDA-2013TUS000822

PATIENT
  Sex: 0

DRUGS (2)
  1. KAZANO [Suspect]
     Indication: TYPE 2 DIABETES MELLITUS
     Dosage: 12.5/1000 MG, BID
     Route: 048
     Dates: start: 20130819
  2. ANTINEOPLASTIC AGENTS [Concomitant]
     Indication: NEOPLASM MALIGNANT

REACTIONS (3)
  - Renal failure [Not Recovered/Not Resolved]
  - Dehydration [Unknown]
  - Pain [Unknown]
